FAERS Safety Report 9356064 (Version 1)
Quarter: 2013Q2

REPORT INFORMATION
  Report Type: Spontaneous
  Country: US (occurrence: US)
  Receive Date: 20130619
  Receipt Date: 20130619
  Transmission Date: 20140414
  Serious: No
  Sender: FDA-Public Use
  Company Number: US-009507513-1306USA005968

PATIENT
  Sex: Female

DRUGS (2)
  1. ZOCOR [Suspect]
     Route: 048
  2. VIOXX [Suspect]
     Route: 048

REACTIONS (7)
  - Throat tightness [Unknown]
  - Chest discomfort [Unknown]
  - Swollen tongue [Unknown]
  - Muscle spasms [Unknown]
  - Sensory loss [Unknown]
  - Hypersensitivity [Unknown]
  - Pharyngeal oedema [Unknown]
